FAERS Safety Report 4591744-X (Version None)
Quarter: 2005Q1

REPORT INFORMATION
  Report Type: 
  Country: None (occurrence: None)
  Receive Date: 20050223
  Receipt Date: 20050223
  Transmission Date: 20050727
  Serious: Yes (Death)
  Sender: FDA-Public Use
  Company Number: None

PATIENT
  Age: 56 Year
  Sex: Female
  Weight: 58.9676 kg

DRUGS (1)
  1. ARAVA [Suspect]
     Indication: RHEUMATOID ARTHRITIS
     Dosage: 20 MG PO QD
     Route: 048

REACTIONS (15)
  - ANTINUCLEAR ANTIBODY POSITIVE [None]
  - AUTOIMMUNE HEPATITIS [None]
  - DRUG TOXICITY [None]
  - ENCEPHALOPATHY [None]
  - GENERAL PHYSICAL HEALTH DETERIORATION [None]
  - HEPATIC ATROPHY [None]
  - HEPATIC FAILURE [None]
  - HEPATIC NECROSIS [None]
  - HEPATOCELLULAR DAMAGE [None]
  - HEPATOTOXICITY [None]
  - INTERNATIONAL NORMALISED RATIO INCREASED [None]
  - MENTAL STATUS CHANGES [None]
  - PERITONITIS BACTERIAL [None]
  - PNEUMONIA [None]
  - TROPONIN INCREASED [None]
